FAERS Safety Report 21643428 (Version 3)
Quarter: 2023Q1

REPORT INFORMATION
  Report Type: Spontaneous
  Country: GB (occurrence: GB)
  Receive Date: 20221125
  Receipt Date: 20230303
  Transmission Date: 20230418
  Serious: Yes (Other)
  Sender: FDA-Public Use
  Company Number: GB-TAKEDA-2022TUS082768

PATIENT
  Age: 35 Year
  Sex: Male

DRUGS (5)
  1. METHYLPREDNISOLONE [Suspect]
     Active Substance: METHYLPREDNISOLONE
     Indication: Hodgkin^s disease
     Dosage: UNKNOWN
     Route: 050
     Dates: start: 2019
  2. BRENTUXIMAB VEDOTIN [Suspect]
     Active Substance: BRENTUXIMAB VEDOTIN
     Indication: Hodgkin^s disease
     Route: 050
     Dates: start: 2019
  3. CISPLATIN [Suspect]
     Active Substance: CISPLATIN
     Indication: Hodgkin^s disease
     Dosage: UNKNOWN
     Route: 050
     Dates: start: 2019
  4. CYTARABINE [Suspect]
     Active Substance: CYTARABINE
     Indication: Hodgkin^s disease
     Dosage: UNKNOWN
     Route: 050
     Dates: start: 2019
  5. ETOPOSIDE [Suspect]
     Active Substance: ETOPOSIDE
     Indication: Hodgkin^s disease
     Dosage: UNKNOWN
     Route: 050
     Dates: start: 2019

REACTIONS (1)
  - Hodgkin^s disease recurrent [Unknown]

NARRATIVE: CASE EVENT DATE: 20190101
